FAERS Safety Report 8914744 (Version 1)
Quarter: 2012Q4

REPORT INFORMATION
  Report Type: 
  Country: DK (occurrence: DK)
  Receive Date: 20121119
  Receipt Date: 20121119
  Transmission Date: 20130627
  Serious: Yes (Hospitalization)
  Sender: FDA-Public Use
  Company Number: DK-INCYTE CORPORATION-2012IN002309

PATIENT
  Sex: Female

DRUGS (3)
  1. JAKAVI [Suspect]
     Indication: MYELOFIBROSIS
     Dosage: 20 mg, bid
     Dates: start: 20120724
  2. JAKAVI [Suspect]
     Dosage: 15 mg, qd
  3. JAKAVI [Suspect]
     Dosage: 20 mg, bid
     Dates: start: 20121011

REACTIONS (3)
  - Pneumonia [Unknown]
  - Dyspnoea [Unknown]
  - Pyrexia [Unknown]
